FAERS Safety Report 7029714-4 (Version None)
Quarter: 2010Q4

REPORT INFORMATION
  Report Type: 
  Country: None (occurrence: None)
  Receive Date: 20101005
  Receipt Date: 20101005
  Transmission Date: 20110411
  Serious: Yes (Hospitalization)
  Sender: FDA-Public Use
  Company Number: None

PATIENT
  Sex: Female
  Weight: 69 kg

DRUGS (2)
  1. CARBOPLATIN [Suspect]
     Dosage: 578 MG
     Dates: end: 20100706
  2. TAXOL [Suspect]
     Dosage: 356 MG
     Dates: end: 20100706

REACTIONS (2)
  - PNEUMONIA ASPIRATION [None]
  - SYNCOPE [None]
